FAERS Safety Report 11865409 (Version 2)
Quarter: 2016Q1

REPORT INFORMATION
  Report Type: Report from Study
  Country: US (occurrence: US)
  Receive Date: 20151223
  Receipt Date: 20160115
  Transmission Date: 20160526
  Serious: No
  Sender: FDA-Public Use
  Company Number: US-BIOMARINAP-US-2015-108302

PATIENT
  Age: 12 Year
  Sex: Male

DRUGS (1)
  1. KUVAN [Suspect]
     Active Substance: SAPROPTERIN DIHYDROCHLORIDE
     Indication: PHENYLKETONURIA
     Dosage: 900 MG, UNK
     Route: 048

REACTIONS (5)
  - Nasal congestion [Unknown]
  - Ear pain [Unknown]
  - Cough [Unknown]
  - Dental caries [Unknown]
  - Speech disorder [Unknown]

NARRATIVE: CASE EVENT DATE: 20150208
